FAERS Safety Report 6953065-7 (Version None)
Quarter: 2010Q3

REPORT INFORMATION
  Report Type: 
  Country: None (occurrence: None)
  Receive Date: 20100829
  Receipt Date: 20100524
  Transmission Date: 20110219
  Serious: No
  Sender: FDA-Public Use
  Company Number: US-ABBOTT-10P-163-0647680-00

PATIENT
  Sex: Female
  Weight: 76.272 kg

DRUGS (1)
  1. NIASPAN [Suspect]
     Indication: BLOOD CHOLESTEROL INCREASED
     Dosage: BID
     Dates: start: 20100201

REACTIONS (2)
  - FLUSHING [None]
  - PRURITUS [None]
